FAERS Safety Report 6925081-2 (Version None)
Quarter: 2010Q3

REPORT INFORMATION
  Report Type: 
  Country: None (occurrence: None)
  Receive Date: 20100816
  Receipt Date: 20100805
  Transmission Date: 20110219
  Serious: No
  Sender: FDA-Public Use
  Company Number: US-B.I. PHARMACEUTICALS,INC./RIDGEFIELD-2010-BP-08927BP

PATIENT
  Sex: Female

DRUGS (9)
  1. SPIRIVA [Suspect]
     Indication: BRONCHITIS CHRONIC
     Dosage: 18 MCG
     Route: 055
     Dates: start: 20100501
  2. SPIRIVA [Suspect]
     Indication: PNEUMONIA
  3. ADVAIR DISKUS 100/50 [Concomitant]
     Indication: BRONCHITIS CHRONIC
  4. ADVAIR DISKUS 100/50 [Concomitant]
     Indication: PNEUMONIA
  5. SIMVASTATIN [Concomitant]
     Indication: BLOOD CHOLESTEROL INCREASED
  6. NASONEX [Concomitant]
     Indication: BRONCHITIS CHRONIC
  7. NASONEX [Concomitant]
     Indication: PNEUMONIA
  8. ZYRTEC [Concomitant]
     Indication: BRONCHITIS CHRONIC
  9. ZYRTEC [Concomitant]
     Indication: PNEUMONIA

REACTIONS (3)
  - DRUG INEFFECTIVE [None]
  - DRY MOUTH [None]
  - URINARY RETENTION [None]
